FAERS Safety Report 25134439 (Version 2)
Quarter: 2025Q2

REPORT INFORMATION
  Report Type: Spontaneous
  Country: GB (occurrence: GB)
  Receive Date: 20250328
  Receipt Date: 20250402
  Transmission Date: 20250717
  Serious: Yes (Hospitalization, Other)
  Sender: SANOFI AVENTIS
  Company Number: None

PATIENT
  Age: 62 Year
  Sex: Female

DRUGS (7)
  1. APIXABAN [Suspect]
     Active Substance: APIXABAN
  2. ATORVASTATIN [Suspect]
     Active Substance: ATORVASTATIN
  3. OMEPRAZOLE [Suspect]
     Active Substance: OMEPRAZOLE
  4. LANTUS [Suspect]
     Active Substance: INSULIN GLARGINE
  5. INSULIN ASPART [Suspect]
     Active Substance: INSULIN ASPART
  6. CANAGLIFLOZIN [Suspect]
     Active Substance: CANAGLIFLOZIN
  7. ALBUTEROL [Suspect]
     Active Substance: ALBUTEROL

REACTIONS (1)
  - Diabetic ketoacidosis [Unknown]
